FAERS Safety Report 7036942-0 (Version None)
Quarter: 2010Q4

REPORT INFORMATION
  Report Type: 
  Country: None (occurrence: None)
  Receive Date: 20101011
  Receipt Date: 20100930
  Transmission Date: 20110411
  Serious: Yes (Other)
  Sender: FDA-Public Use
  Company Number: SE-JNJFOC-20101000793

PATIENT
  Age: 55 Year
  Sex: Female

DRUGS (5)
  1. CONCERTA [Suspect]
     Indication: ATTENTION DEFICIT/HYPERACTIVITY DISORDER
     Route: 048
  2. CONCERTA [Suspect]
     Route: 048
  3. IPREN [Concomitant]
     Route: 065
  4. ALVEDON [Concomitant]
     Route: 065
  5. THERALEN [Concomitant]
     Route: 065

REACTIONS (3)
  - SJOGREN'S SYNDROME [None]
  - TONGUE DISCOLOURATION [None]
  - URINARY TRACT INFECTION [None]
